FAERS Safety Report 5968244-5 (Version None)
Quarter: 2008Q4

REPORT INFORMATION
  Report Type: 
  Country: None (occurrence: None)
  Receive Date: 20081119
  Receipt Date: 20081106
  Transmission Date: 20090506
  Serious: Yes (Hospitalization, Disabling)
  Sender: FDA-Public Use
  Company Number: WSDF_00761

PATIENT
  Age: 62 Year
  Sex: Male

DRUGS (3)
  1. WINRHO SDF [Suspect]
     Indication: IDIOPATHIC THROMBOCYTOPENIC PURPURA
     Dosage: 50 UG/KG IV
     Route: 042
  2. DANAZOL [Concomitant]
  3. PREDNISONE TAB [Concomitant]

REACTIONS (18)
  - ACUTE DISSEMINATED ENCEPHALOMYELITIS [None]
  - BACK PAIN [None]
  - CEREBRAL ISCHAEMIA [None]
  - CEREBRAL MICROANGIOPATHY [None]
  - CHILLS [None]
  - CORTICAL LAMINAR NECROSIS [None]
  - ENCEPHALITIS TOXIC [None]
  - ENCEPHALOPATHY [None]
  - HYPOTHYROIDISM [None]
  - INTRACRANIAL ANEURYSM [None]
  - INTRAVASCULAR HAEMOLYSIS [None]
  - MALAISE [None]
  - PSEUDOVASCULITIS [None]
  - RED BLOOD CELL SEDIMENTATION RATE INCREASED [None]
  - RED BLOOD CELLS URINE POSITIVE [None]
  - THROMBOTIC THROMBOCYTOPENIC PURPURA [None]
  - VASCULAR OCCLUSION [None]
  - VASCULITIS CEREBRAL [None]
